FAERS Safety Report 5653895-8 (Version None)
Quarter: 2008Q1

REPORT INFORMATION
  Report Type: 
  Country: None (occurrence: None)
  Receive Date: 20080306
  Receipt Date: 20080226
  Transmission Date: 20080703
  Serious: Yes (Hospitalization, Other)
  Sender: FDA-Public Use
  Company Number: US-ELI_LILLY_AND_COMPANY-US200801005740

PATIENT
  Age: 35 Year
  Sex: Female

DRUGS (1)
  1. CYMBALTA [Suspect]
     Indication: ANXIETY
     Dosage: 120 MG, UNK
     Dates: start: 20070101, end: 20080122

REACTIONS (4)
  - CONVULSION [None]
  - HEART RATE ABNORMAL [None]
  - LABILE BLOOD PRESSURE [None]
  - MUSCLE SPASMS [None]
